FAERS Safety Report 7761770-8 (Version None)
Quarter: 2011Q3

REPORT INFORMATION
  Report Type: 
  Country: None (occurrence: None)
  Receive Date: 20110920
  Receipt Date: 20110909
  Transmission Date: 20111222
  Serious: Yes (Hospitalization)
  Sender: FDA-Public Use
  Company Number: PHEH2011US03314

PATIENT
  Sex: Female

DRUGS (2)
  1. TOBI [Suspect]
     Dosage: UNK UKN, UNK
     Dates: start: 20110812
  2. TOBI [Suspect]
     Indication: LUNG INFECTION PSEUDOMONAL
     Dosage: 300 MG, BID
     Dates: start: 20110401

REACTIONS (1)
  - LUNG INFECTION PSEUDOMONAL [None]
